FAERS Safety Report 4816877-1 (Version None)
Quarter: 2005Q4

REPORT INFORMATION
  Report Type: 
  Country: None (occurrence: None)
  Receive Date: 20051031
  Receipt Date: 20051031
  Transmission Date: 20060501
  Serious: Yes (Other)
  Sender: FDA-Public Use
  Company Number: None

PATIENT
  Sex: Male
  Weight: 104.3273 kg

DRUGS (3)
  1. ALPRAZOLAM [Suspect]
     Indication: ANXIETY
     Dosage: TOTAL 6MG DAILY  AS NEEDED PO
     Route: 048
     Dates: start: 20050718, end: 20051018
  2. ALPRAZOLAM [Suspect]
     Indication: PANIC ATTACK
     Dosage: TOTAL 6MG DAILY  AS NEEDED PO
     Route: 048
     Dates: start: 20050718, end: 20051018
  3. ALPRAZOLAM [Concomitant]

REACTIONS (2)
  - DRUG EFFECT DECREASED [None]
  - PHARMACEUTICAL PRODUCT COMPLAINT [None]
